FAERS Safety Report 8716228 (Version 4)
Quarter: 2012Q4

REPORT INFORMATION
  Report Type: Report from Study
  Country: US (occurrence: US)
  Receive Date: 20120810
  Receipt Date: 20121204
  Transmission Date: 20130627
  Serious: Yes (Other)
  Sender: FDA-Public Use
  Company Number: US-009507513-1207USA010883

PATIENT
  Age: 32 Year
  Sex: Female
  Weight: 104.4 kg

DRUGS (5)
  1. ASENAPINE MALEATE-BIPOLAR DISORDER [Suspect]
     Indication: BIPOLAR I DISORDER
     Dosage: 10 mg, bid,5DF
     Route: 060
     Dates: start: 20120711
  2. XANAX [Concomitant]
     Indication: ANXIETY
     Dosage: 0.5 mg, prn
     Route: 048
     Dates: start: 20120530
  3. SYNTHROID [Concomitant]
     Indication: HYPOTHYROIDISM
     Dosage: 0.05 mg, UNK
     Route: 048
     Dates: start: 201203
  4. COGENTIN [Concomitant]
     Indication: AKATHISIA
     Dosage: 1.0 mg, hs
     Route: 048
     Dates: start: 20120724
  5. ZOTRAN [Concomitant]
     Indication: NAUSEA
     Dosage: 4 mg, qd
     Route: 048
     Dates: start: 20120719

REACTIONS (4)
  - Abdominal pain [Recovered/Resolved]
  - Food intolerance [None]
  - Nausea [None]
  - Vomiting [None]
